FAERS Safety Report 18352846 (Version 1)
Quarter: 2020Q4

REPORT INFORMATION
  Report Type: Spontaneous
  Country: NL (occurrence: NL)
  Receive Date: 20201007
  Receipt Date: 20201007
  Transmission Date: 20210114
  Serious: Yes (Other)
  Sender: FDA-Public Use
  Company Number: NL-AUROBINDO-AUR-APL-2020-050856

PATIENT
  Age: 60 Year
  Sex: Female

DRUGS (3)
  1. NAPROXEN 500 MG, TABLET [Suspect]
     Active Substance: NAPROXEN
     Indication: COLITIS ULCERATIVE
     Dosage: UNK
     Route: 065
  2. CALCI CHEW D3 [Concomitant]
     Active Substance: CALCIUM CARBONATE\CHOLECALCIFEROL
     Indication: PRODUCT USED FOR UNKNOWN INDICATION
     Dosage: UNK (1MG/IE, 1X/D)
     Route: 048
     Dates: start: 20200130
  3. MERCAPTOPURINE. [Concomitant]
     Active Substance: MERCAPTOPURINE
     Indication: PRODUCT USED FOR UNKNOWN INDICATION
     Dosage: UNK (25MG, 1X/D)
     Route: 048
     Dates: start: 20200117

REACTIONS (3)
  - Mucous stools [Recovered/Resolved]
  - Haematochezia [Recovered/Resolved]
  - Abdominal pain [Recovered/Resolved]

NARRATIVE: CASE EVENT DATE: 20200902
